FAERS Safety Report 5756779-X (Version None)
Quarter: 2008Q2

REPORT INFORMATION
  Report Type: 
  Country: None (occurrence: None)
  Receive Date: 20080529
  Receipt Date: 20080513
  Transmission Date: 20081010
  Serious: Yes (Hospitalization)
  Sender: FDA-Public Use
  Company Number: 8032795

PATIENT
  Age: 52 Year
  Sex: Male

DRUGS (11)
  1. KEPPRA [Suspect]
     Indication: CONVULSION PROPHYLAXIS
     Dates: start: 20080423
  2. HYDROXYZINE [Suspect]
  3. TEMODAR [Suspect]
     Dosage: 145 MG 1/D PO
     Route: 048
     Dates: start: 20080317, end: 20080428
  4. ZETIA [Suspect]
  5. COREG [Suspect]
  6. PREVACID [Suspect]
  7. SYNTHROID [Suspect]
  8. PERCOCET [Suspect]
  9. CLOTRIMAZOLE [Suspect]
  10. ZOCOR [Suspect]
  11. ZOFRAN [Suspect]

REACTIONS (2)
  - ABDOMINAL PAIN [None]
  - DRUG HYPERSENSITIVITY [None]
